FAERS Safety Report 5711575-4 (Version None)
Quarter: 2008Q2

REPORT INFORMATION
  Report Type: 
  Country: None (occurrence: None)
  Receive Date: 20080418
  Receipt Date: 20080418
  Transmission Date: 20081010
  Serious: Yes (Life-Threatening, Hospitalization)
  Sender: FDA-Public Use
  Company Number: None

PATIENT
  Sex: Male
  Weight: 65.45 kg

DRUGS (1)
  1. WARFARIN SODIUM [Suspect]
     Indication: MITRAL VALVE REPLACEMENT
     Dosage: TAKE 7.5 MG DAILY ALT. WITH 10MG PO
     Route: 048
     Dates: start: 20080101, end: 20080414

REACTIONS (3)
  - HAEMATOMA [None]
  - INGUINAL HERNIA REPAIR [None]
  - INTERNATIONAL NORMALISED RATIO DECREASED [None]
